FAERS Safety Report 6866565-5 (Version None)
Quarter: 2010Q3

REPORT INFORMATION
  Report Type: 
  Country: None (occurrence: None)
  Receive Date: 20100722
  Receipt Date: 20100713
  Transmission Date: 20110219
  Serious: Yes (Other)
  Sender: FDA-Public Use
  Company Number: US-BAYER-201032846GPV

PATIENT
  Age: 36 Year
  Sex: Male

DRUGS (2)
  1. ESTRADIOL [Suspect]
     Indication: HORMONE THERAPY
     Route: 062
  2. ESTRADIOL [Suspect]
     Route: 062

REACTIONS (3)
  - CONVULSION [None]
  - HEADACHE [None]
  - MENINGIOMA [None]
